FAERS Safety Report 8543049-X (Version None)
Quarter: 2012Q3

REPORT INFORMATION
  Report Type: 
  Country: None (occurrence: None)
  Receive Date: 20120727
  Receipt Date: 20120719
  Transmission Date: 20120928
  Serious: Yes (Other)
  Sender: FDA-Public Use
  Company Number: CA-JNJFOC-20110904798

PATIENT
  Sex: Female
  Weight: 71.6 kg

DRUGS (8)
  1. REMICADE [Suspect]
     Dosage: 37TH INFUSION
     Route: 042
     Dates: start: 20111103
  2. REMICADE [Suspect]
     Dosage: PATIENT HAD 36TH INFUSION ON THE DAY OF REPORTING
     Route: 042
     Dates: start: 20040628
  3. REMICADE [Suspect]
     Dosage: 40TH INFUSION
     Route: 042
     Dates: start: 20120522
  4. REMICADE [Suspect]
     Indication: CROHN'S DISEASE
     Dosage: 38TH INFUSION
     Route: 042
     Dates: start: 20120103
  5. REMICADE [Suspect]
     Dosage: 36TH INFUSION
     Route: 042
     Dates: start: 20110908
  6. REMICADE [Suspect]
     Route: 042
     Dates: start: 20110705
  7. REMICADE [Suspect]
     Dosage: 39TH INFUSION
     Route: 042
     Dates: start: 20120301
  8. REMICADE [Suspect]
     Dosage: 41ST INFUSION
     Route: 042
     Dates: start: 20120719

REACTIONS (4)
  - ANAL ABSCESS [None]
  - FOETAL DISTRESS SYNDROME [None]
  - MATERNAL EXPOSURE DURING PREGNANCY [None]
  - PROLONGED LABOUR [None]
